FAERS Safety Report 5857865-6 (Version None)
Quarter: 2008Q3

REPORT INFORMATION
  Report Type: 
  Country: None (occurrence: None)
  Receive Date: 20080825
  Receipt Date: 20080825
  Transmission Date: 20090109
  Serious: Yes (Other)
  Sender: FDA-Public Use
  Company Number: None

PATIENT
  Sex: Male
  Weight: 88.4514 kg

DRUGS (1)
  1. KLONOPIN [Suspect]
     Indication: RESTLESS LEGS SYNDROME
     Dosage: 1MG 1X DAY PO
     Route: 048
     Dates: start: 19950101, end: 20070122

REACTIONS (1)
  - WITHDRAWAL SYNDROME [None]
